FAERS Safety Report 22019449 (Version 1)
Quarter: 2023Q1

REPORT INFORMATION
  Report Type: Report from Study
  Country: US (occurrence: US)
  Receive Date: 20230222
  Receipt Date: 20230222
  Transmission Date: 20230418
  Serious: Yes (Other)
  Sender: FDA-Public Use
  Company Number: US-BAUSCH-BL-2023-002940

PATIENT
  Age: 71 Year
  Sex: Female

DRUGS (2)
  1. SILIQ [Suspect]
     Active Substance: BRODALUMAB
     Indication: Psoriasis
     Dosage: 210 MG/1.5ML, INJECT 210MG SUBCUTANEOUSLY ON WEEK 0,1 AND 2 AS DIRECTED
     Route: 058
  2. PREDNISONE [Concomitant]
     Active Substance: PREDNISONE
     Indication: Psoriasis

REACTIONS (5)
  - Back injury [Unknown]
  - Fall [Unknown]
  - Suicidal ideation [Unknown]
  - Psoriasis [Unknown]
  - Gait inability [Unknown]
